FAERS Safety Report 7517109-6 (Version None)
Quarter: 2011Q2

REPORT INFORMATION
  Report Type: 
  Country: None (occurrence: None)
  Receive Date: 20110601
  Receipt Date: 20110524
  Transmission Date: 20111010
  Serious: Yes (Hospitalization)
  Sender: FDA-Public Use
  Company Number: GB-ABBOTT-11P-167-0728275-00

PATIENT
  Age: 65 Year
  Sex: Male

DRUGS (2)
  1. MYSOLINE [Suspect]
     Indication: CONVULSION PROPHYLAXIS
  2. HUMIRA [Suspect]
     Indication: CROHN'S DISEASE

REACTIONS (1)
  - MALAISE [None]
